FAERS Safety Report 8854764 (Version 2)
Quarter: 2012Q4

REPORT INFORMATION
  Report Type: 
  Country: FR (occurrence: FR)
  Receive Date: 20121023
  Receipt Date: 20121109
  Transmission Date: 20130627
  Serious: Yes (Other)
  Sender: FDA-Public Use
  Company Number: FR-BRISTOL-MYERS SQUIBB COMPANY-17045253

PATIENT
  Age: 49 Year
  Sex: Male

DRUGS (4)
  1. REYATAZ CAPS 300 MG [Suspect]
     Indication: HIV INFECTION
     Route: 048
     Dates: start: 2009
  2. NORVIR [Suspect]
     Indication: HIV INFECTION
     Dosage: Tablet
     Route: 048
     Dates: start: 2009
  3. KIVEXA [Suspect]
     Indication: HIV INFECTION
     Dosage: Abacavir/Lamivudine: 600mg/300mg
     Route: 048
     Dates: start: 2009
  4. VFEND [Suspect]
     Indication: BRONCHOPULMONARY ASPERGILLOSIS
     Dosage: 300mg twice a day
     Route: 048
     Dates: start: 201010

REACTIONS (1)
  - Squamous cell carcinoma [Not Recovered/Not Resolved]
